FAERS Safety Report 14028183 (Version 1)
Quarter: 2017Q4

REPORT INFORMATION
  Report Type: Spontaneous
  Country: FR (occurrence: FR)
  Receive Date: 20171002
  Receipt Date: 20171002
  Transmission Date: 20180321
  Serious: Yes (Life-Threatening)
  Sender: FDA-Public Use
  Company Number: FR-ASTRAZENECA-2017SE99559

PATIENT
  Age: 11386 Day
  Sex: Male

DRUGS (7)
  1. VALIUM [Concomitant]
     Active Substance: DIAZEPAM
     Dosage: 10 MG X 3 TIMES UNKNWON
     Dates: start: 201708
  2. TERCIAN [Concomitant]
     Active Substance: CYAMEMAZINE
     Dates: start: 201708
  3. SUBUTEX [Suspect]
     Active Substance: BUPRENORPHINE HYDROCHLORIDE
     Indication: DEPENDENCE
     Dosage: 2.0DF UNKNOWN
     Route: 045
     Dates: start: 20170908, end: 20170908
  4. NOCTAMIDE [Concomitant]
     Active Substance: LORMETAZEPAM
     Dosage: 2.0MG UNKNOWN
     Dates: start: 201708
  5. XEROQUEL [Suspect]
     Active Substance: QUETIAPINE FUMARATE
     Indication: MENTAL DISORDER
     Route: 048
     Dates: start: 201708, end: 20170912
  6. SUBUTEX [Suspect]
     Active Substance: BUPRENORPHINE HYDROCHLORIDE
     Indication: DEPENDENCE
     Dosage: 2.0DF UNKNOWN
     Route: 048
     Dates: start: 20170908, end: 20170908
  7. THERALENE [Concomitant]
     Active Substance: TRIMEPRAZINE
     Dosage: 4.0DF UNKNOWN
     Dates: start: 201708

REACTIONS (1)
  - Interstitial lung disease [Recovering/Resolving]

NARRATIVE: CASE EVENT DATE: 20170908
